FAERS Safety Report 6251278-3 (Version None)
Quarter: 2009Q2

REPORT INFORMATION
  Report Type: 
  Country: None (occurrence: None)
  Receive Date: 20090630
  Receipt Date: 20090622
  Transmission Date: 20091009
  Serious: Yes (Hospitalization)
  Sender: FDA-Public Use
  Company Number: US-BAYER-US-2006-020912

PATIENT
  Age: 40 Year
  Sex: Female

DRUGS (29)
  1. CAMPATH [Suspect]
     Indication: MULTIPLE SCLEROSIS
     Dosage: TOTAL DAILY DOSE: 24 MG
     Route: 042
     Dates: start: 20030714, end: 20030718
  2. CYMBALTA [Concomitant]
     Dosage: TOTAL DAILY DOSE: 60 MG
     Route: 048
     Dates: start: 20070727
  3. PRAVASTATIN [Concomitant]
     Dosage: TOTAL DAILY DOSE: 20 MG
     Route: 048
  4. CLONAZEPAM [Concomitant]
     Dosage: TOTAL DAILY DOSE: 1 MG
     Route: 048
  5. GABAPENTIN [Concomitant]
     Dosage: TOTAL DAILY DOSE: 900 MG
     Route: 048
     Dates: start: 20021114
  6. TEMAZEPAM [Concomitant]
     Dosage: TOTAL DAILY DOSE: 50 MG
     Route: 048
     Dates: start: 20030714
  7. HYDROCODONE BITARTRATE [Concomitant]
  8. VERAPAMIL [Concomitant]
     Dosage: TOTAL DAILY DOSE: 180 MG
     Route: 048
  9. PROTONIX [Concomitant]
     Dosage: TOTAL DAILY DOSE: 40 MG
     Route: 048
  10. CLAVINEX [Concomitant]
     Dosage: Q12H
  11. HYDROMORPHONE [Concomitant]
     Dosage: 2 MG II Q4H PRN
  12. TOPROL-XL [Concomitant]
     Dates: end: 20060425
  13. SINGULAIR [Concomitant]
     Dosage: TOTAL DAILY DOSE: 10 MG
     Route: 048
  14. ALBUTEROL [Concomitant]
     Route: 055
  15. ATROVENT [Concomitant]
     Route: 055
  16. FLOVENT [Concomitant]
  17. NITROGLYCERIN [Concomitant]
     Route: 062
  18. ASPIRIN [Concomitant]
     Dosage: TOTAL DAILY DOSE: 81 MG
     Route: 048
  19. COPAXONE [Concomitant]
     Dosage: TOTAL DAILY DOSE: 20 MG
     Route: 058
  20. ZOLOFT [Concomitant]
     Dosage: TOTAL DAILY DOSE: 100 MG
     Route: 048
  21. AVELOX [Concomitant]
  22. XANAX [Concomitant]
  23. BACLOFEN [Concomitant]
     Dates: start: 20021216
  24. DETROL [Concomitant]
     Dates: start: 20020220
  25. TIZANIDINE [Concomitant]
  26. CLARINEX [Concomitant]
  27. BACLOVENT [Concomitant]
  28. REGULAR INSULIN [Concomitant]
     Dosage: SLIDING SCAL
  29. PULMICORT-100 [Concomitant]

REACTIONS (11)
  - ASTHMA [None]
  - CHEST PAIN [None]
  - DEPRESSION [None]
  - DYSPEPSIA [None]
  - GASTRITIS [None]
  - HEADACHE [None]
  - HEMIPARESIS [None]
  - HYPOAESTHESIA [None]
  - MULTIPLE SCLEROSIS [None]
  - MUSCLE SPASMS [None]
  - VOMITING [None]
